FAERS Safety Report 5327875-6 (Version None)
Quarter: 2007Q2

REPORT INFORMATION
  Report Type: 
  Country: None (occurrence: None)
  Receive Date: 20070517
  Receipt Date: 20070507
  Transmission Date: 20071010
  Serious: Yes (Other)
  Sender: FDA-Public Use
  Company Number: JP-PFIZER INC-2007022215

PATIENT
  Sex: Male
  Weight: 55 kg

DRUGS (10)
  1. CABASER [Suspect]
     Indication: PARKINSON'S DISEASE
     Route: 048
  2. MADOPAR [Suspect]
     Indication: PARKINSON'S DISEASE
     Route: 048
  3. SELEGILINE HYDROCHLORIDE [Suspect]
     Indication: PARKINSON'S DISEASE
     Route: 048
  4. ALL OTHER THERAPEUTIC PRODUCTS [Concomitant]
  5. GASTER OD [Concomitant]
     Indication: OESOPHAGITIS HAEMORRHAGIC
     Route: 048
  6. HALCION [Concomitant]
     Indication: INSOMNIA
     Route: 048
     Dates: start: 20070209
  7. LOXONIN [Concomitant]
     Indication: ARTHRALGIA
     Route: 048
     Dates: start: 20070209
  8. LAXOBERON [Concomitant]
     Indication: ARTHRALGIA
     Route: 048
     Dates: start: 20070209
  9. VOLTAREN [Concomitant]
     Route: 062
     Dates: start: 20070209
  10. ODYNE [Concomitant]
     Indication: PROSTATE CANCER
     Route: 048
     Dates: start: 20070209

REACTIONS (7)
  - AGITATION [None]
  - EXOPHTHALMOS [None]
  - HALLUCINATION [None]
  - INTENTIONAL DRUG MISUSE [None]
  - PHOTOPHOBIA [None]
  - PSYCHOMOTOR HYPERACTIVITY [None]
  - SYMPATHICOTONIA [None]
